FAERS Safety Report 16402787 (Version 1)
Quarter: 2019Q2

REPORT INFORMATION
  Report Type: Spontaneous
  Country: ES (occurrence: ES)
  Receive Date: 20190607
  Receipt Date: 20190607
  Transmission Date: 20190711
  Serious: No
  Sender: FDA-Public Use
  Company Number: ES-009507513-1906ESP001933

PATIENT
  Sex: Male

DRUGS (2)
  1. OPHTHALMIC PREPARATIONS (UNSPECIFIED) [Suspect]
     Active Substance: UNSPECIFIED INGREDIENT
     Indication: GLAUCOMA
     Dosage: UNK
     Route: 047
  2. NASONEX [Suspect]
     Active Substance: MOMETASONE FUROATE
     Indication: GLAUCOMA
     Dosage: UNK, TWICE PER WEEK
     Route: 047

REACTIONS (5)
  - Product appearance confusion [Unknown]
  - Product use in unapproved indication [Unknown]
  - Incorrect route of product administration [Unknown]
  - Therapeutic response unexpected [Unknown]
  - Wrong product administered [Unknown]
